FAERS Safety Report 8387727-4 (Version None)
Quarter: 2012Q2

REPORT INFORMATION
  Report Type: 
  Country: None (occurrence: None)
  Receive Date: 20120525
  Receipt Date: 20120521
  Transmission Date: 20120825
  Serious: Yes (Other)
  Sender: FDA-Public Use
  Company Number: US-BAYER-2012-051537

PATIENT
  Age: 23 Year
  Sex: Female
  Weight: 158.73 kg

DRUGS (3)
  1. IBUPROFEN [Concomitant]
  2. BEYAZ [Suspect]
     Route: 048
  3. YAZ [Suspect]
     Route: 048

REACTIONS (1)
  - DEEP VEIN THROMBOSIS [None]
